FAERS Safety Report 6634958-7 (Version None)
Quarter: 2010Q1

REPORT INFORMATION
  Report Type: 
  Country: None (occurrence: None)
  Receive Date: 20100315
  Receipt Date: 20100305
  Transmission Date: 20100710
  Serious: Yes (Hospitalization)
  Sender: FDA-Public Use
  Company Number: JP-BRISTOL-MYERS SQUIBB COMPANY-14972830

PATIENT
  Age: 73 Year
  Sex: Female

DRUGS (9)
  1. CARBIDOPA + LEVODOPA [Suspect]
     Route: 048
     Dates: start: 20100201
  2. AMLODIPINE BESYLATE [Concomitant]
  3. ATELEC [Concomitant]
  4. LANDSEN [Concomitant]
  5. PLAVIX [Concomitant]
  6. LASIX [Concomitant]
  7. FRANDOL [Concomitant]
  8. OMEPRAL [Concomitant]
  9. MEVALOTIN [Concomitant]

REACTIONS (2)
  - HAEMOLYTIC ANAEMIA [None]
  - NEPHROGENIC ANAEMIA [None]
